FAERS Safety Report 5176373-1 (Version None)
Quarter: 2006Q4

REPORT INFORMATION
  Report Type: 
  Country: None (occurrence: None)
  Receive Date: 20061215
  Receipt Date: 20060525
  Transmission Date: 20070319
  Serious: Yes (Hospitalization, Disabling)
  Sender: FDA-Public Use
  Company Number: US-ROCHE-449770

PATIENT
  Sex: Male
  Weight: 88.9 kg

DRUGS (2)
  1. ACCUTANE [Suspect]
     Indication: DRUG USE FOR UNKNOWN INDICATION
     Route: 048
     Dates: start: 20020415
  2. ACCUTANE [Suspect]
     Route: 048
     Dates: start: 20020513, end: 20020615

REACTIONS (7)
  - BLOOD THYROID STIMULATING HORMONE DECREASED [None]
  - GLOMERULONEPHRITIS PROLIFERATIVE [None]
  - NEPHROLITHIASIS [None]
  - NORMOCHROMIC NORMOCYTIC ANAEMIA [None]
  - RENAL FAILURE CHRONIC [None]
  - URINARY TRACT INFECTION [None]
  - VITAMIN B12 DEFICIENCY [None]
